FAERS Safety Report 12871688 (Version 1)
Quarter: 2016Q4

REPORT INFORMATION
  Report Type: Spontaneous
  Country: US (occurrence: US)
  Receive Date: 20161021
  Receipt Date: 20161021
  Transmission Date: 20170207
  Serious: No
  Sender: FDA-Public Use
  Company Number: None

PATIENT

DRUGS (4)
  1. METHYLPHENIDATE 20MG IR [Suspect]
     Active Substance: METHYLPHENIDATE
  2. METHYLPHENIDATE 20MG ER(LA) CAPS ACTAVIS [Suspect]
     Active Substance: METHYLPHENIDATE
  3. POLY-VI-SOL WITH IRON [Suspect]
     Active Substance: IRON\VITAMINS
  4. POLY-VI-SOL [Suspect]
     Active Substance: VITAMINS

REACTIONS (1)
  - Drug dispensing error [None]
